FAERS Safety Report 4969482-0 (Version None)
Quarter: 2006Q2

REPORT INFORMATION
  Report Type: 
  Country: None (occurrence: None)
  Receive Date: 20060406
  Receipt Date: 20060328
  Transmission Date: 20061013
  Serious: Yes (Death, Hospitalization)
  Sender: FDA-Public Use
  Company Number: 163-20785-06030894

PATIENT
  Age: 54 Year
  Sex: Male
  Weight: 82.5547 kg

DRUGS (2)
  1. THALOMID [Suspect]
     Indication: HEPATIC NEOPLASM MALIGNANT
     Dosage: 400 MG, QHS, ORAL
     Route: 048
     Dates: start: 20060317, end: 20060324
  2. XELODA [Suspect]
     Indication: HEPATIC NEOPLASM MALIGNANT
     Dosage: 1500 MG, BID, ORAL
     Route: 048
     Dates: start: 20060317, end: 20060324

REACTIONS (8)
  - CARDIO-RESPIRATORY ARREST [None]
  - DEHYDRATION [None]
  - GASTROINTESTINAL HAEMORRHAGE [None]
  - JAUNDICE [None]
  - ORAL INTAKE REDUCED [None]
  - UPPER GASTROINTESTINAL HAEMORRHAGE [None]
  - VARICOSE VEIN RUPTURED [None]
  - VOMITING [None]
